FAERS Safety Report 4273134-2 (Version None)
Quarter: 2004Q1

REPORT INFORMATION
  Report Type: 
  Country: None (occurrence: None)
  Receive Date: 20040116
  Receipt Date: 20031210
  Transmission Date: 20041129
  Serious: Yes (Disabling)
  Sender: FDA-Public Use
  Company Number: ZA-GLAXOSMITHKLINE-B0317539A

PATIENT
  Age: 59 Year
  Sex: Female

DRUGS (8)
  1. BUPROPION HYDROCHLORIDE [Suspect]
     Route: 048
     Dates: start: 20031101, end: 20031203
  2. WARFARIN SODIUM [Concomitant]
     Indication: HEART VALVE REPLACEMENT
     Dosage: 5MG PER DAY
     Route: 048
  3. PERINDOPRIL ERBUMINE [Concomitant]
     Indication: HYPERTENSION
     Dosage: 6MG PER DAY
     Route: 048
  4. AMILORIDE HCL AND HYDROCHLOROTHIAZIDE [Concomitant]
     Indication: HYPERTENSION
     Dosage: 1U PER DAY
     Route: 048
  5. ROFECOXIB [Concomitant]
     Indication: ARTHRITIS
     Dosage: 25MG PER DAY
     Route: 048
  6. CONJUGATED OESTROGEN [Concomitant]
  7. ARTHROGUARD [Concomitant]
  8. DIGOXIN [Concomitant]
     Dosage: .25MG PER DAY
     Route: 048

REACTIONS (4)
  - AGRAPHIA [None]
  - APHAGIA [None]
  - APHASIA [None]
  - TRANSIENT ISCHAEMIC ATTACK [None]
